FAERS Safety Report 8379018-2 (Version None)
Quarter: 2012Q2

REPORT INFORMATION
  Report Type: 
  Country: None (occurrence: None)
  Receive Date: 20120522
  Receipt Date: 20120522
  Transmission Date: 20120825
  Serious: Yes (Other)
  Sender: FDA-Public Use
  Company Number: None

PATIENT
  Age: 15 Year
  Sex: Female
  Weight: 26.3086 kg

DRUGS (1)
  1. SINGULAIR [Suspect]
     Indication: MULTIPLE ALLERGIES
     Dosage: 1 DAILY PO
     Route: 048
     Dates: start: 20120101, end: 20120510

REACTIONS (7)
  - AGGRESSION [None]
  - ANXIETY [None]
  - SCREAMING [None]
  - HOSTILITY [None]
  - EDUCATIONAL PROBLEM [None]
  - ANGER [None]
  - ABNORMAL BEHAVIOUR [None]
